FAERS Safety Report 5280635-7 (Version None)
Quarter: 2007Q1

REPORT INFORMATION
  Report Type: 
  Country: None (occurrence: None)
  Receive Date: 20061221
  Receipt Date: 20060815
  Transmission Date: 20070707
  Serious: No
  Sender: FDA-Public Use
  Company Number: US-CVT-061732

PATIENT
  Age: 64 Year
  Sex: Male
  Weight: 96.6 kg

DRUGS (11)
  1. RANEXA [Suspect]
     Indication: ANGINA PECTORIS
     Dosage: 500 MG, BID, ORAL
     Route: 048
     Dates: start: 20060809, end: 20060101
  2. ALLOPURINOL [Concomitant]
  3. INDOMETHACIN [Concomitant]
  4. PLAVIX [Concomitant]
  5. COZAAR [Concomitant]
  6. ISOSORBIDE (ISOSORBIDE) [Concomitant]
  7. FOLIC ACID [Concomitant]
  8. LOTREL [Concomitant]
  9. METOPROLOL/00376901/(METOPROLOL) [Concomitant]
  10. RANITIDINE /00550801/(RANITIDINE) [Concomitant]
  11. NITROGLYCERIN [Concomitant]

REACTIONS (1)
  - GOUT [None]
